FAERS Safety Report 4741337-6 (Version None)
Quarter: 2005Q3

REPORT INFORMATION
  Report Type: 
  Country: None (occurrence: None)
  Receive Date: 20050808
  Receipt Date: 20050726
  Transmission Date: 20060218
  Serious: Yes (Hospitalization)
  Sender: FDA-Public Use
  Company Number: USA0507103852

PATIENT
  Age: 88 Year
  Sex: Male

DRUGS (8)
  1. FORTEO [Suspect]
     Indication: BONE DISORDER
     Dates: start: 20050201
  2. ZOCOR [Concomitant]
  3. FLOMAX [Concomitant]
  4. ASPIRIN [Concomitant]
  5. PEPCID [Concomitant]
  6. SYNTHROID [Concomitant]
  7. MULTI-VITAMIN [Concomitant]
  8. AMBIEN [Concomitant]

REACTIONS (4)
  - EXCORIATION [None]
  - PHARMACEUTICAL PRODUCT COMPLAINT [None]
  - PURULENCE [None]
  - SEPSIS [None]
